FAERS Safety Report 6897316-6 (Version None)
Quarter: 2010Q3

REPORT INFORMATION
  Report Type: 
  Country: None (occurrence: None)
  Receive Date: 20100802
  Receipt Date: 20070510
  Transmission Date: 20110219
  Serious: No
  Sender: FDA-Public Use
  Company Number: US-PFIZER INC-2007037040

PATIENT
  Sex: Female
  Weight: 70.454 kg

DRUGS (3)
  1. LYRICA [Suspect]
     Indication: FIBROMYALGIA
     Dates: start: 20070427
  2. LYRICA [Suspect]
     Indication: CHRONIC FATIGUE SYNDROME
  3. DRUG, UNSPECIFIED [Concomitant]

REACTIONS (3)
  - MYALGIA [None]
  - PAIN IN EXTREMITY [None]
  - PARAESTHESIA [None]
